FAERS Safety Report 6643467-0 (Version None)
Quarter: 2010Q1

REPORT INFORMATION
  Report Type: 
  Country: None (occurrence: None)
  Receive Date: 20100319
  Receipt Date: 20100308
  Transmission Date: 20100710
  Serious: Yes (Other)
  Sender: FDA-Public Use
  Company Number: TN-WATSON-2010-03100

PATIENT
  Age: 56 Year
  Sex: Male

DRUGS (2)
  1. MICROZIDE [Suspect]
     Indication: HYPERTENSION
     Dosage: UNK
  2. FUROSEMIDE (WATSON LABORATORIES) [Suspect]
     Indication: HYPERTENSION
     Dosage: 40 MG, DAILY

REACTIONS (3)
  - CROSS SENSITIVITY REACTION [None]
  - LICHENOID KERATOSIS [None]
  - PRURITUS [None]
